FAERS Safety Report 25433420 (Version 1)
Quarter: 2025Q2

REPORT INFORMATION
  Report Type: Spontaneous
  Country: US (occurrence: US)
  Receive Date: 20250613
  Receipt Date: 20250613
  Transmission Date: 20250717
  Serious: Yes (Other)
  Sender: MYLAN
  Company Number: US-MYLANLABS-2025M1048950

PATIENT
  Age: 69 Year
  Sex: Female

DRUGS (11)
  1. BUPRENORPHINE AND NALOXONE SUBLINGUAL FILM [Suspect]
     Active Substance: BUPRENORPHINE HYDROCHLORIDE\NALOXONE HYDROCHLORIDE
     Indication: Pain
     Dosage: BID, 8-2MG BID
  2. ACETAMINOPHEN [Suspect]
     Active Substance: ACETAMINOPHEN
     Indication: Pain
     Dosage: 1000 MILLIGRAM, Q6H
  3. PREGABALIN [Suspect]
     Active Substance: PREGABALIN
     Indication: Pain
     Dosage: 50 MILLIGRAM, TID
  4. OXYCODONE [Suspect]
     Active Substance: OXYCODONE
     Indication: Pain
     Dosage: 5-10MG, Q4H
  5. OXYCODONE [Suspect]
     Active Substance: OXYCODONE
     Dosage: 10-15MG EVERY 3H
  6. HYDROMORPHONE [Suspect]
     Active Substance: HYDROMORPHONE
     Indication: Pain
  7. HYDROMORPHONE [Suspect]
     Active Substance: HYDROMORPHONE
  8. HYDROMORPHONE [Suspect]
     Active Substance: HYDROMORPHONE
  9. HYDROMORPHONE [Suspect]
     Active Substance: HYDROMORPHONE
     Indication: Pain
     Dosage: UNK, Q3H (6-8MG EVERY 3H PRN FOR MODERATE/SEVERE PAIN)
  10. KETAMINE [Suspect]
     Active Substance: KETAMINE
     Indication: Pain
  11. LORAZEPAM [Concomitant]
     Active Substance: LORAZEPAM
     Indication: Anxiety
     Dosage: 0.5 MILLIGRAM, TID PRN

REACTIONS (2)
  - Drug ineffective [Unknown]
  - Off label use [Unknown]
